FAERS Safety Report 8483627-X (Version None)
Quarter: 2012Q3

REPORT INFORMATION
  Report Type: 
  Country: None (occurrence: None)
  Receive Date: 20120702
  Receipt Date: 20120627
  Transmission Date: 20120928
  Serious: Yes (Hospitalization, Other)
  Sender: FDA-Public Use
  Company Number: US-AMGEN-USASP2012039967

PATIENT
  Age: 60 Year
  Sex: Male

DRUGS (11)
  1. FRAGMIN [Concomitant]
  2. CYCLOBENZAPRINE [Concomitant]
  3. ALBUTEROL [Concomitant]
  4. SENSIPAR [Suspect]
     Indication: HYPERPARATHYROIDISM SECONDARY
     Dosage: 30 MG, QD
     Route: 048
  5. VANCOMYCIN [Concomitant]
  6. MIDAZOLAM [Concomitant]
  7. PHENERGAN [Concomitant]
  8. PROTONIX [Concomitant]
  9. FLOMAX [Concomitant]
  10. PREDNISONE TAB [Concomitant]
  11. IPRATROPIUM BROMIDE [Concomitant]

REACTIONS (2)
  - HOSPITALISATION [None]
  - ENDOTRACHEAL INTUBATION [None]
